FAERS Safety Report 7637437-3 (Version None)
Quarter: 2011Q3

REPORT INFORMATION
  Report Type: 
  Country: None (occurrence: None)
  Receive Date: 20110726
  Receipt Date: 20110722
  Transmission Date: 20111222
  Serious: No
  Sender: FDA-Public Use
  Company Number: US-PFIZER INC-2011167386

PATIENT
  Sex: Female

DRUGS (2)
  1. ZOCOR [Concomitant]
     Indication: BLOOD CHOLESTEROL INCREASED
     Dosage: UNK
     Route: 048
     Dates: start: 20110101
  2. ZOLOFT [Suspect]
     Indication: ANXIETY
     Dosage: 200 MG, DAILY
     Dates: start: 20070101

REACTIONS (2)
  - WITHDRAWAL SYNDROME [None]
  - DRUG INEFFECTIVE [None]
